FAERS Safety Report 5330874-1 (Version None)
Quarter: 2007Q2

REPORT INFORMATION
  Report Type: 
  Country: None (occurrence: None)
  Receive Date: 20070516
  Receipt Date: 20070507
  Transmission Date: 20071010
  Serious: Yes (Other)
  Sender: FDA-Public Use
  Company Number: GXKR2007US04101

PATIENT
  Age: 59 Year
  Sex: Female

DRUGS (2)
  1. PREDNISONE [Suspect]
     Indication: WEGENER'S GRANULOMATOSIS
  2. CYCLOPHOSPHAMIDE [Suspect]
     Indication: WEGENER'S GRANULOMATOSIS
     Dates: end: 19900101

REACTIONS (16)
  - ANAEMIA MACROCYTIC [None]
  - ANISOCYTOSIS [None]
  - AUTOIMMUNE THROMBOCYTOPENIA [None]
  - BLOOD LACTATE DEHYDROGENASE INCREASED [None]
  - BONE MARROW FAILURE [None]
  - CHRONIC MYELOMONOCYTIC LEUKAEMIA [None]
  - CUSHINGOID [None]
  - HYPOGAMMAGLOBULINAEMIA [None]
  - MARROW HYPERPLASIA [None]
  - PLATELET MORPHOLOGY ABNORMAL [None]
  - POIKILOCYTOSIS [None]
  - POLYCHROMASIA [None]
  - PUNCTATE BASOPHILIA [None]
  - RED BLOOD CELL NUCLEATED MORPHOLOGY PRESENT [None]
  - REFRACTORY ANAEMIA [None]
  - THROMBOCYTOPENIA [None]
